FAERS Safety Report 20388039 (Version 1)
Quarter: 2022Q1

REPORT INFORMATION
  Report Type: Spontaneous
  Country: SE (occurrence: SE)
  Receive Date: 20220128
  Receipt Date: 20220128
  Transmission Date: 20220424
  Serious: Yes (Hospitalization)
  Sender: FDA-Public Use
  Company Number: SE-SUN PHARMACEUTICAL INDUSTRIES LTD-2022RR-324993

PATIENT
  Age: 84 Year
  Sex: Female

DRUGS (14)
  1. CIPROFLOXACIN [Suspect]
     Active Substance: CIPROFLOXACIN
     Indication: Product used for unknown indication
     Dosage: UNK
     Route: 065
     Dates: end: 2021
  2. Spironolakton 25 mg 1 x 1 [Concomitant]
     Indication: Product used for unknown indication
     Dosage: UNK
     Route: 065
  3. VAGIFEM [Concomitant]
     Active Substance: ESTRADIOL
     Indication: Product used for unknown indication
     Dosage: UNK
     Route: 065
  4. Ovixan 1 mg/g [Concomitant]
     Indication: Product used for unknown indication
     Dosage: UNK
     Route: 065
  5. Canoderm 5 % 1 x 2 [Concomitant]
     Indication: Product used for unknown indication
     Dosage: UNK
     Route: 065
  6. Furix 40 mg 1 x 1 [Concomitant]
     Indication: Product used for unknown indication
     Dosage: UNK
     Route: 065
  7. Seritide Diskus 50 ?g/250 ?g per dos 1-2 x 2 [Concomitant]
     Indication: Product used for unknown indication
     Dosage: UNK
     Route: 065
  8. Alvedon 1 g 1 x 3 [Concomitant]
     Indication: Product used for unknown indication
     Dosage: UNK
     Route: 065
  9. Omeprazol 20 mg 1 x 1 [Concomitant]
     Indication: Product used for unknown indication
     Dosage: UNK
     Route: 065
  10. Amlodipin 5 mg 1 x 1 [Concomitant]
     Indication: Product used for unknown indication
     Dosage: UNK
     Route: 065
  11. Cortimyk 20 mg/g + 10 mg/g [Concomitant]
     Indication: Product used for unknown indication
     Dosage: (1)AS NECESSARY
     Route: 065
  12. Movicol 1 x 1 [Concomitant]
     Indication: Product used for unknown indication
     Dosage: UNK
     Route: 065
  13. Betolvex 1 mg 1 x 1 [Concomitant]
     Indication: Product used for unknown indication
     Dosage: UNK
     Route: 065
  14. Allopurinol 300 mg 1 x 1 [Concomitant]
     Indication: Product used for unknown indication
     Dosage: UNK
     Route: 065

REACTIONS (1)
  - Pancreatitis acute [Recovering/Resolving]

NARRATIVE: CASE EVENT DATE: 20211201
